FAERS Safety Report 19224011 (Version 1)
Quarter: 2021Q2

REPORT INFORMATION
  Report Type: Spontaneous
  Country: US (occurrence: US)
  Receive Date: 20210506
  Receipt Date: 20210506
  Transmission Date: 20210717
  Serious: No
  Sender: FDA-Public Use
  Company Number: None

PATIENT
  Age: 87 Year
  Sex: Female
  Weight: 96.1 kg

DRUGS (11)
  1. ISOSORBIDE DINITRATE 60MG [Concomitant]
  2. METOPROLOL ER 25MG [Concomitant]
  3. ATORVASTATIN 80MG [Concomitant]
     Active Substance: ATORVASTATIN
  4. AMLODIPINE [Concomitant]
     Active Substance: AMLODIPINE BESYLATE
     Dates: start: 20200213
  5. CABOMETYX [Suspect]
     Active Substance: CABOZANTINIB S-MALATE
     Indication: RENAL CELL CARCINOMA
     Route: 048
     Dates: start: 20200915
  6. LISINOPRIL. [Concomitant]
     Active Substance: LISINOPRIL
  7. LISINOPRIL. [Concomitant]
     Active Substance: LISINOPRIL
  8. WARFARIN 5MG [Concomitant]
     Active Substance: WARFARIN
  9. WARFARIN 7.5MG [Concomitant]
     Active Substance: WARFARIN
  10. ASPIRIN 81MG [Concomitant]
     Active Substance: ASPIRIN
  11. HYDRALAZINE [Concomitant]
     Active Substance: HYDRALAZINE HYDROCHLORIDE

REACTIONS (1)
  - Diarrhoea [None]

NARRATIVE: CASE EVENT DATE: 20210506
